FAERS Safety Report 9680621 (Version 1)
Quarter: 2013Q4

REPORT INFORMATION
  Report Type: Spontaneous
  Country: US (occurrence: US)
  Receive Date: 20131111
  Receipt Date: 20131111
  Transmission Date: 20140711
  Serious: No
  Sender: FDA-Public Use
  Company Number: US-PFIZER INC-2013318456

PATIENT
  Age: 55 Year
  Sex: Female
  Weight: 81.63 kg

DRUGS (3)
  1. PRISTIQ [Suspect]
     Indication: DEPRESSION
     Dosage: 50 MG, 1X/DAY
     Route: 048
     Dates: start: 2009, end: 2009
  2. PRISTIQ [Suspect]
     Dosage: 50 MG, 2X/DAY
     Route: 048
     Dates: start: 2009
  3. ONE-A-DAY WOMEN [Concomitant]
     Dosage: UNK

REACTIONS (6)
  - Drug ineffective [Unknown]
  - Crying [Unknown]
  - Agitation [Unknown]
  - Feeling abnormal [Unknown]
  - Irritability [Unknown]
  - Drug intolerance [Unknown]
